FAERS Safety Report 5210952-8 (Version None)
Quarter: 2007Q1

REPORT INFORMATION
  Report Type: 
  Country: None (occurrence: None)
  Receive Date: 20070117
  Receipt Date: 20070105
  Transmission Date: 20070707
  Serious: Yes (Other)
  Sender: FDA-Public Use
  Company Number: US-PFIZER INC-2007002718

PATIENT
  Sex: Male
  Weight: 95.3 kg

DRUGS (8)
  1. LYRICA [Suspect]
     Indication: MIGRAINE PROPHYLAXIS
     Dates: start: 20061004, end: 20061101
  2. PAMELOR [Suspect]
     Indication: MIGRAINE
     Dates: start: 20061004, end: 20061201
  3. SERZONE [Suspect]
     Indication: MIGRAINE
  4. DRAMAMINE [Suspect]
  5. IMITREX [Concomitant]
  6. PERCOCET [Concomitant]
  7. ACTIQ [Concomitant]
  8. RITALIN [Concomitant]

REACTIONS (10)
  - AMNESIA [None]
  - CEREBROVASCULAR ACCIDENT [None]
  - DISORIENTATION [None]
  - DROOLING [None]
  - DRUG INEFFECTIVE [None]
  - FEELING ABNORMAL [None]
  - MIGRAINE [None]
  - SEDATION [None]
  - SLEEP DISORDER [None]
  - SLEEP WALKING [None]
